FAERS Safety Report 7877007-5 (Version None)
Quarter: 2011Q4

REPORT INFORMATION
  Report Type: 
  Country: None (occurrence: None)
  Receive Date: 20111031
  Receipt Date: 20110908
  Transmission Date: 20120403
  Serious: No
  Sender: FDA-Public Use
  Company Number: US-ABBOTT-11P-163-0853153-00

PATIENT
  Sex: Female
  Weight: 37.682 kg

DRUGS (2)
  1. CREON [Suspect]
     Indication: MALABSORPTION
     Dosage: 1 /MOUTH, BEFORE SNACKS AND MEALS
     Route: 048
     Dates: start: 20110824
  2. HYDROCODONE BITARTRATE [Concomitant]
     Indication: PRODUCT USED FOR UNKNOWN INDICATION

REACTIONS (8)
  - AGITATION [None]
  - FREQUENT BOWEL MOVEMENTS [None]
  - ABDOMINAL DISTENSION [None]
  - COUGH [None]
  - WEIGHT DECREASED [None]
  - ABDOMINAL PAIN UPPER [None]
  - FLATULENCE [None]
  - DIZZINESS [None]
